FAERS Safety Report 18330738 (Version 1)
Quarter: 2020Q3

REPORT INFORMATION
  Report Type: Spontaneous
  Country: JP (occurrence: JP)
  Receive Date: 20200930
  Receipt Date: 20200930
  Transmission Date: 20201103
  Serious: Yes (Death, Other)
  Sender: FDA-Public Use
  Company Number: JP-LUPIN PHARMACEUTICALS INC.-2020-06485

PATIENT
  Age: 82 Year
  Sex: Female

DRUGS (6)
  1. METHYLPREDNISOLONE. [Suspect]
     Active Substance: METHYLPREDNISOLONE
     Indication: STILL^S DISEASE
     Dosage: 1 GRAM, QD
     Route: 042
  2. VONOPRAZAN [Concomitant]
     Active Substance: VONOPRAZAN
     Indication: PEPTIC ULCER
     Dosage: UNK
     Route: 065
  3. LANSOPRAZOLE. [Concomitant]
     Active Substance: LANSOPRAZOLE
     Indication: PEPTIC ULCER
     Dosage: UNK
     Route: 065
  4. CYCLOSPORINE. [Suspect]
     Active Substance: CYCLOSPORINE
     Indication: STILL^S DISEASE
     Dosage: 200 MILLIGRAM, QD
     Route: 048
  5. PREDNISOLONE. [Suspect]
     Active Substance: PREDNISOLONE
     Indication: STILL^S DISEASE
     Dosage: 50 MILLIGRAM, QD
     Route: 065
  6. TOCILIZUMAB. [Suspect]
     Active Substance: TOCILIZUMAB
     Indication: STILL^S DISEASE
     Dosage: 400 MILLIGRAM (8 MILLIGRAM/KILOGRAM (MG/KG))
     Route: 042

REACTIONS (6)
  - Abdominal pain upper [Unknown]
  - Gastric ulcer [Unknown]
  - Mucormycosis [Unknown]
  - Gastropleural fistula [Unknown]
  - Pneumonia cytomegaloviral [Fatal]
  - Melaena [Unknown]
